FAERS Safety Report 7263786-7 (Version None)
Quarter: 2011Q1

REPORT INFORMATION
  Report Type: 
  Country: None (occurrence: None)
  Receive Date: 20110130
  Receipt Date: 20101109
  Transmission Date: 20110831
  Serious: No
  Sender: FDA-Public Use
  Company Number: US-ABBOTT-10P-163-0684266-00

PATIENT
  Age: 68 Year
  Sex: Female

DRUGS (5)
  1. GENERIC DARVOCET [Concomitant]
     Indication: PAIN
  2. HUMIRA [Suspect]
  3. MORPHINE [Concomitant]
     Indication: PRODUCT USED FOR UNKNOWN INDICATION
  4. HUMIRA [Suspect]
     Indication: CROHN'S DISEASE
     Dates: start: 20101104
  5. HUMIRA [Suspect]

REACTIONS (1)
  - FATIGUE [None]
